FAERS Safety Report 8874273 (Version 1)
Quarter: 2012Q4

REPORT INFORMATION
  Report Type: 
  Country: LB (occurrence: LB)
  Receive Date: 20121031
  Receipt Date: 20121031
  Transmission Date: 20130627
  Serious: Yes (Other)
  Sender: FDA-Public Use
  Company Number: LB-BIOGENIDEC-2012BI047228

PATIENT
  Age: 21 Year
  Sex: Female
  Weight: 73 kg

DRUGS (4)
  1. TYSABRI [Suspect]
     Indication: RELAPSING-REMITTING MULTIPLE SCLEROSIS
     Route: 042
     Dates: start: 20111104
  2. CARBAMAZEPINE [Concomitant]
     Indication: CONVULSION
     Route: 048
     Dates: start: 20100301
  3. AMONTODINE [Concomitant]
     Indication: FATIGUE
     Route: 048
     Dates: start: 20111101
  4. PERGABLIN [Concomitant]
     Indication: PAIN
     Route: 048
     Dates: start: 20110401

REACTIONS (2)
  - Macule [Recovered/Resolved]
  - Skin induration [Recovered/Resolved]
